FAERS Safety Report 19544324 (Version 2)
Quarter: 2021Q3

REPORT INFORMATION
  Report Type: Report from Study
  Country: MX (occurrence: MX)
  Receive Date: 20210713
  Receipt Date: 20210804
  Transmission Date: 20211014
  Serious: Yes (Hospitalization, Other)
  Sender: FDA-Public Use
  Company Number: MX-EMD SERONO-9250085

PATIENT
  Age: 59 Year
  Sex: Female

DRUGS (7)
  1. ASPIRIN                            /00002701/ [Concomitant]
     Active Substance: ASPIRIN
     Indication: ANTICOAGULANT THERAPY
  2. REBIF [Suspect]
     Active Substance: INTERFERON BETA-1A
     Indication: MULTIPLE SCLEROSIS
     Route: 058
     Dates: start: 20140109
  3. LIPITOR [Concomitant]
     Active Substance: ATORVASTATIN CALCIUM
     Indication: MYOCARDIAL ISCHAEMIA
  4. ASTRAZENECA COVID?19 VACCINE [Concomitant]
     Active Substance: AZD-1222
     Indication: COVID-19 IMMUNISATION
     Dosage: FIRST DOSE ON 30?MAR?2020
  5. BIOTENE                            /03475601/ [Concomitant]
     Active Substance: SODIUM FLUORIDE\SODIUM MONOFLUOROPHOSPHATE
     Indication: HYPERTENSION
  6. HUMYLUB OFTENO [Concomitant]
     Indication: EYE DISORDER
     Dosage: ONE DROP EVERY 4 HOURS
  7. ASTRAZENECA COVID?19 VACCINE [Concomitant]
     Active Substance: AZD-1222
     Dosage: SECOND DOSE ON 01?JUN?2021

REACTIONS (8)
  - Blood pressure fluctuation [Recovered/Resolved]
  - Headache [Unknown]
  - Catheterisation cardiac [Recovered/Resolved]
  - Coronary artery disease [Recovered/Resolved]
  - Asthenia [Unknown]
  - Ischaemic cardiomyopathy [Recovered/Resolved]
  - Inappropriate schedule of product administration [Not Recovered/Not Resolved]
  - Fatigue [Unknown]

NARRATIVE: CASE EVENT DATE: 20140109
